FAERS Safety Report 21079204 (Version 2)
Quarter: 2022Q3

REPORT INFORMATION
  Report Type: Report from Study
  Country: US (occurrence: US)
  Receive Date: 20220714
  Receipt Date: 20220812
  Transmission Date: 20221027
  Serious: Yes (Hospitalization)
  Sender: FDA-Public Use
  Company Number: US-ABBVIE-22K-163-4337801-00

PATIENT
  Age: 75 Year
  Sex: Male

DRUGS (11)
  1. DUOPA [Suspect]
     Active Substance: CARBIDOPA\LEVODOPA
     Indication: Parkinson^s disease
     Route: 050
     Dates: start: 20211209
  2. DUOPA [Suspect]
     Active Substance: CARBIDOPA\LEVODOPA
  3. COVID-19 VACCINE NOS [Concomitant]
     Active Substance: COVID-19 VACCINE NOS
     Indication: COVID-19 immunisation
     Route: 030
  4. DUPIXENT [Concomitant]
     Active Substance: DUPILUMAB
     Indication: Product used for unknown indication
     Dosage: DUPIXENT PEN 200MG/1.14PEN, 1 DOSE EVERY TWO WEEKS
     Route: 058
  5. CITALOPRAM [Concomitant]
     Active Substance: CITALOPRAM HYDROBROMIDE
     Indication: Product used for unknown indication
     Dosage: 1 TABLET DAILY
     Route: 048
  6. MYRBETRIQ [Concomitant]
     Active Substance: MIRABEGRON
     Indication: Product used for unknown indication
     Dosage: 1 TABLET DAILY
     Route: 048
  7. ASPIRIN [Concomitant]
     Active Substance: ASPIRIN
     Indication: Product used for unknown indication
     Dosage: 1 TABLET EVERY AFTERNOON, 325MG
     Route: 048
  8. AMANTADINE [Concomitant]
     Active Substance: AMANTADINE
     Indication: Product used for unknown indication
     Dosage: 1 TABLET DAILY, 100 MG
     Route: 048
  9. CARBIDOPA\LEVODOPA [Concomitant]
     Active Substance: CARBIDOPA\LEVODOPA
     Indication: Product used for unknown indication
     Dosage: 5 TIMES A DAY, 10-100MG
     Route: 048
  10. CARBIDOPA\LEVODOPA [Concomitant]
     Active Substance: CARBIDOPA\LEVODOPA
     Indication: Product used for unknown indication
     Dosage: CARBIDOPA-LEVODOPA ER 25-100MG, AT BED TIME
     Route: 048
  11. LAXATIVE STOOL SOFTENER WITH SENNA [Concomitant]
     Indication: Product used for unknown indication
     Route: 048

REACTIONS (14)
  - Urinary tract infection [Unknown]
  - Medical device site vesicles [Recovered/Resolved]
  - Urinary tract infection [Recovered/Resolved]
  - Movement disorder [Unknown]
  - Gait disturbance [Unknown]
  - Stoma site erythema [Recovered/Resolved]
  - Stoma site oedema [Recovering/Resolving]
  - Stoma site inflammation [Recovering/Resolving]
  - Stoma site infection [Unknown]
  - Stoma site discharge [Recovered/Resolved]
  - Stoma complication [Not Recovered/Not Resolved]
  - Drug ineffective [Recovered/Resolved]
  - On and off phenomenon [Recovered/Resolved]
  - On and off phenomenon [Not Recovered/Not Resolved]

NARRATIVE: CASE EVENT DATE: 20220301
